FAERS Safety Report 8968479 (Version 1)
Quarter: 2012Q4

REPORT INFORMATION
  Report Type: 
  Country: US (occurrence: US)
  Receive Date: 20121217
  Receipt Date: 20121217
  Transmission Date: 20130627
  Serious: Yes (Death, Hospitalization)
  Sender: FDA-Public Use
  Company Number: US-INCYTE CORPORATION-2012IN002552

PATIENT
  Age: 54 None
  Sex: Male

DRUGS (1)
  1. JAKAFI [Suspect]
     Indication: MYELOFIBROSIS
     Dosage: 10 mg, bid
     Route: 048

REACTIONS (4)
  - Cardiac arrest [Fatal]
  - Multi-organ failure [Fatal]
  - Disease progression [Fatal]
  - Septic shock [Fatal]
